FAERS Safety Report 10626917 (Version 1)
Quarter: 2014Q4

REPORT INFORMATION
  Report Type: Spontaneous
  Country: GB (occurrence: GB)
  Receive Date: 20141204
  Receipt Date: 20141204
  Transmission Date: 20150529
  Serious: Yes (Disabling)
  Sender: FDA-Public Use
  Company Number: GB-TEVA-524356ISR

PATIENT
  Age: 70 Year
  Sex: Female
  Weight: 80 kg

DRUGS (8)
  1. TRIMETHOPRIM. [Suspect]
     Active Substance: TRIMETHOPRIM
     Indication: URINARY TRACT INFECTION
     Dosage: AT NIGHT
     Route: 048
     Dates: start: 20140522, end: 20140609
  2. ESCITALOPRAM [Concomitant]
     Active Substance: ESCITALOPRAM OXALATE
  3. FUROSEMIDE. [Concomitant]
     Active Substance: FUROSEMIDE
  4. ASPIRIN. [Concomitant]
     Active Substance: ASPIRIN
  5. PARACETAMOL [Concomitant]
     Active Substance: ACETAMINOPHEN
  6. DEPAKOTE [Concomitant]
     Active Substance: DIVALPROEX SODIUM
  7. ALLOPURINOL. [Concomitant]
     Active Substance: ALLOPURINOL
  8. MIRTAZAPINE. [Concomitant]
     Active Substance: MIRTAZAPINE

REACTIONS (6)
  - Deafness unilateral [Not Recovered/Not Resolved]
  - Joint swelling [Recovered/Resolved]
  - Arthralgia [Recovered/Resolved]
  - Urticaria [Recovered/Resolved]
  - Cutaneous vasculitis [Recovered/Resolved]
  - Proteinuria [Recovered/Resolved]

NARRATIVE: CASE EVENT DATE: 20140606
